FAERS Safety Report 7911565-7 (Version None)
Quarter: 2011Q4

REPORT INFORMATION
  Report Type: 
  Country: None (occurrence: None)
  Receive Date: 20111109
  Receipt Date: 20111101
  Transmission Date: 20120403
  Serious: Yes (Hospitalization)
  Sender: FDA-Public Use
  Company Number: 2011080066

PATIENT
  Age: 58 Year
  Sex: Female
  Weight: 62.7 kg

DRUGS (11)
  1. MULTIVITAMIN [Concomitant]
  2. CALCIUM/ VITAMIN D (CALCIUM, CHOLECALCIFEROL) [Concomitant]
  3. GLUCOSAMINE PLUS MSM (GLUCOSAMINE, METHYLSULPHONYLMETHANE) [Concomitant]
  4. TOPIRAMATE [Concomitant]
  5. IBUPROFEN [Concomitant]
  6. TRAMADOL HYDROCHLORIDE [Concomitant]
  7. FELBAMATE [Suspect]
     Indication: EPILEPSY
     Dosage: 900 MG TWICE DAILY, 1200 MG ONCE DAILY (3 IN 1 D), ORAL
     Route: 048
     Dates: start: 20061123
  8. FISH OIL (FISH OIL) [Concomitant]
  9. ROZEREM [Concomitant]
  10. E2007 (INVESTIGATIONAL DRUG) (PERAMPANEL) [Suspect]
     Indication: EPILEPSY
     Dosage: CONVERSION PHASE (6 IN 1 D), OPEN LABEL PHASE MAINTENANCE PHASE (2 MG, 6 IN 1 D)ORAL
     Route: 048
     Dates: start: 20090129, end: 20090512
  11. E2007 (INVESTIGATIONAL DRUG) (PERAMPANEL) [Suspect]
     Indication: EPILEPSY
     Dosage: CONVERSION PHASE (6 IN 1 D), OPEN LABEL PHASE MAINTENANCE PHASE (2 MG, 6 IN 1 D)ORAL
     Route: 048
     Dates: start: 20090513

REACTIONS (7)
  - DIZZINESS [None]
  - VERTIGO [None]
  - CONDITION AGGRAVATED [None]
  - ANAEMIA [None]
  - OSTEOARTHRITIS [None]
  - PYREXIA [None]
  - VERTIGO POSITIONAL [None]
